FAERS Safety Report 5853895-9 (Version None)
Quarter: 2008Q3

REPORT INFORMATION
  Report Type: 
  Country: None (occurrence: None)
  Receive Date: 20080822
  Receipt Date: 20080815
  Transmission Date: 20090109
  Serious: Yes (Death)
  Sender: FDA-Public Use
  Company Number: A0742844A

PATIENT

DRUGS (2)
  1. AVANDIA [Suspect]
     Route: 048
  2. DIGOXIN [Suspect]
     Route: 048

REACTIONS (1)
  - CARDIAC DISORDER [None]
